FAERS Safety Report 7344169-8 (Version None)
Quarter: 2011Q1

REPORT INFORMATION
  Report Type: 
  Country: None (occurrence: None)
  Receive Date: 20110310
  Receipt Date: 20100723
  Transmission Date: 20110831
  Serious: No
  Sender: FDA-Public Use
  Company Number: A0872049A

PATIENT
  Age: 38 Year
  Sex: Female

DRUGS (1)
  1. NICORETTE [Suspect]
     Dates: start: 20100720, end: 20100722

REACTIONS (3)
  - SALIVARY HYPERSECRETION [None]
  - NAUSEA [None]
  - VOMITING [None]
